FAERS Safety Report 5651832-3 (Version None)
Quarter: 2008Q1

REPORT INFORMATION
  Report Type: 
  Country: None (occurrence: None)
  Receive Date: 20080305
  Receipt Date: 20080219
  Transmission Date: 20080703
  Serious: Yes (Hospitalization)
  Sender: FDA-Public Use
  Company Number: US-WYE-H02722808

PATIENT
  Sex: Female
  Weight: 53.12 kg

DRUGS (2)
  1. EFFEXOR [Suspect]
     Indication: MAJOR DEPRESSION
     Route: 048
     Dates: start: 20080104, end: 20080201
  2. ALBUTEROL [Concomitant]
     Dosage: UNKNOWN
     Route: 055
     Dates: start: 19960101

REACTIONS (3)
  - ABDOMINAL PAIN [None]
  - ADNEXA UTERI MASS [None]
  - PREGNANCY TEST POSITIVE [None]
